FAERS Safety Report 7249760-5 (Version None)
Quarter: 2011Q1

REPORT INFORMATION
  Report Type: 
  Country: None (occurrence: None)
  Receive Date: 20110128
  Receipt Date: 20100405
  Transmission Date: 20110831
  Serious: No
  Sender: FDA-Public Use
  Company Number: A0844245A

PATIENT
  Age: 32 Year
  Sex: Female

DRUGS (3)
  1. MULTIVITAMIN [Concomitant]
  2. BUPROPION HYDROCHLORIDE [Suspect]
     Indication: DEPRESSION
     Route: 048
     Dates: start: 20091001
  3. VALIUM [Suspect]

REACTIONS (8)
  - ANGER [None]
  - WEIGHT DECREASED [None]
  - BIPOLAR I DISORDER [None]
  - HYPERSOMNIA [None]
  - DISSOCIATION [None]
  - PERSONALITY CHANGE [None]
  - DEPRESSION [None]
  - INSOMNIA [None]
